FAERS Safety Report 8232652-2 (Version None)
Quarter: 2012Q1

REPORT INFORMATION
  Report Type: 
  Country: None (occurrence: None)
  Receive Date: 20120323
  Receipt Date: 20120313
  Transmission Date: 20120608
  Serious: Yes (Disabling, Other)
  Sender: FDA-Public Use
  Company Number: AU-ASTRAZENECA-2012SE14027

PATIENT
  Age: 21186 Day
  Sex: Female
  Weight: 82 kg

DRUGS (8)
  1. BRILINTA [Suspect]
     Route: 048
     Dates: start: 20120221, end: 20120221
  2. IRBESARTAN [Concomitant]
  3. OXYCODONE HCL EXTENDED-RELEASE [Concomitant]
  4. OMEPRAZOLE [Concomitant]
  5. ASPIRIN [Concomitant]
     Route: 048
  6. ACTONEL [Concomitant]
     Route: 048
  7. MELOXICAM [Concomitant]
  8. EZETIMIBE [Concomitant]

REACTIONS (4)
  - CHEST DISCOMFORT [None]
  - FEAR [None]
  - SUFFOCATION FEELING [None]
  - DYSPNOEA [None]
